FAERS Safety Report 13377558 (Version 1)
Quarter: 2017Q1

REPORT INFORMATION
  Report Type: Spontaneous
  Country: CN (occurrence: CN)
  Receive Date: 20170328
  Receipt Date: 20170328
  Transmission Date: 20170429
  Serious: Yes (Hospitalization)
  Sender: FDA-Public Use
  Company Number: CN-JNJFOC-20170323400

PATIENT
  Age: 45 Year
  Sex: Female
  Weight: 60 kg

DRUGS (1)
  1. RISPERDAL [Suspect]
     Active Substance: RISPERIDONE
     Indication: CRANIOCEREBRAL INJURY
     Route: 048
     Dates: start: 20161117, end: 20161122

REACTIONS (4)
  - Platelet count decreased [Recovering/Resolving]
  - Product use issue [Recovering/Resolving]
  - White blood cell count decreased [Recovering/Resolving]
  - Off label use [Recovering/Resolving]

NARRATIVE: CASE EVENT DATE: 20161117
